FAERS Safety Report 7553373-5 (Version None)
Quarter: 2011Q2

REPORT INFORMATION
  Report Type: 
  Country: None (occurrence: None)
  Receive Date: 20110617
  Receipt Date: 20110323
  Transmission Date: 20111010
  Serious: No
  Sender: FDA-Public Use
  Company Number: A0919555A

PATIENT
  Age: 70 Year
  Sex: Male

DRUGS (4)
  1. SYNTHROID [Concomitant]
  2. CELEBREX [Concomitant]
  3. PROMACTA [Suspect]
     Dosage: 300MG PER DAY
     Route: 048
     Dates: start: 20100801
  4. TOPROL-XL [Concomitant]

REACTIONS (4)
  - FATIGUE [None]
  - BONE PAIN [None]
  - HEADACHE [None]
  - OVERDOSE [None]
